FAERS Safety Report 5482321-7 (Version None)
Quarter: 2007Q4

REPORT INFORMATION
  Report Type: 
  Country: None (occurrence: None)
  Receive Date: 20071011
  Receipt Date: 20070927
  Transmission Date: 20080405
  Serious: Yes (Death, Hospitalization)
  Sender: FDA-Public Use
  Company Number: LT-GENENTECH-249070

PATIENT
  Sex: Female
  Weight: 75 kg

DRUGS (2)
  1. HERCEPTIN [Suspect]
     Indication: BREAST CANCER METASTATIC
     Dosage: 284 MG, 1/WEEK
     Route: 042
     Dates: start: 20070814
  2. DOCETAXEL [Concomitant]
     Indication: BREAST CANCER METASTATIC
     Dates: start: 20070807

REACTIONS (2)
  - HEPATIC FAILURE [None]
  - JAUNDICE [None]
